FAERS Safety Report 7591055-4 (Version None)
Quarter: 2011Q3

REPORT INFORMATION
  Report Type: 
  Country: None (occurrence: None)
  Receive Date: 20110705
  Receipt Date: 20110629
  Transmission Date: 20111222
  Serious: Yes (Hospitalization)
  Sender: FDA-Public Use
  Company Number: US-B.I. PHARMACEUTICALS,INC./RIDGEFIELD-2011-BP-13439BP

PATIENT
  Sex: Female

DRUGS (10)
  1. LATANOPROST [Concomitant]
  2. CALCIUM + D [Concomitant]
  3. FISH OIL [Concomitant]
  4. BENEFIBER [Concomitant]
  5. DILTIAZEM [Concomitant]
  6. MULTI-VITAMINS [Concomitant]
  7. LOSARTAN POTASSIUM [Concomitant]
  8. SIMVASTATIN [Concomitant]
  9. PRADAXA [Suspect]
     Indication: ATRIAL FIBRILLATION
     Dosage: 300 MG
     Route: 048
     Dates: start: 20110412
  10. ALIGN [Concomitant]

REACTIONS (2)
  - CHOLECYSTITIS INFECTIVE [None]
  - ABDOMINAL PAIN UPPER [None]
